FAERS Safety Report 5882140-3 (Version None)
Quarter: 2008Q3

REPORT INFORMATION
  Report Type: 
  Country: None (occurrence: None)
  Receive Date: 20080912
  Receipt Date: 20080723
  Transmission Date: 20090109
  Serious: No
  Sender: FDA-Public Use
  Company Number: US-ABBOTT-08P-163-0465725-00

PATIENT
  Sex: Female
  Weight: 68.1 kg

DRUGS (9)
  1. HUMIRA [Suspect]
     Indication: RHEUMATOID ARTHRITIS
     Route: 058
     Dates: end: 20080518
  2. HUMIRA [Suspect]
     Route: 058
     Dates: start: 20080518
  3. HUMIRA [Suspect]
     Dosage: PFS
     Route: 058
     Dates: start: 20050601
  4. TRAMADOL HCL [Concomitant]
     Indication: PAIN
     Dosage: USUALLY TAKES THREE DAILY
     Route: 048
  5. ESOMEPRAZOLE MAGNESIUM [Concomitant]
     Indication: GASTROOESOPHAGEAL REFLUX DISEASE
     Route: 048
  6. ETODOLAC [Concomitant]
     Indication: PAIN
  7. MENEST-HORMONE [Concomitant]
     Indication: HORMONE REPLACEMENT THERAPY
     Route: 048
  8. TUMS [Concomitant]
     Indication: ANTACID THERAPY
     Route: 048
  9. MULTI-VITAMIN [Concomitant]
     Indication: VITAMIN SUPPLEMENTATION
     Route: 048

REACTIONS (5)
  - DRUG DOSE OMISSION [None]
  - GENERALISED OEDEMA [None]
  - OEDEMA PERIPHERAL [None]
  - PAIN [None]
  - PNEUMONIA VIRAL [None]
